FAERS Safety Report 21620874 (Version 1)
Quarter: 2022Q4

REPORT INFORMATION
  Report Type: Spontaneous
  Country: US (occurrence: None)
  Receive Date: 20221118
  Receipt Date: 20221118
  Transmission Date: 20230113
  Serious: Yes (Hospitalization)
  Sender: FDA-Public Use
  Company Number: None

PATIENT
  Sex: Female

DRUGS (1)
  1. NOVOSEVEN RT [Suspect]
     Active Substance: COAGULATION FACTOR VIIA RECOMBINANT HUMAN
     Indication: Abnormal clotting factor
     Dosage: FREQUENCY : AS NEEDED;?
     Route: 040
     Dates: start: 20200226

REACTIONS (3)
  - Haemorrhage [None]
  - Haemarthrosis [None]
  - Poor venous access [None]
